FAERS Safety Report 20376448 (Version 2)
Quarter: 2022Q1

REPORT INFORMATION
  Report Type: Spontaneous
  Country: CN (occurrence: CN)
  Receive Date: 20220125
  Receipt Date: 20220131
  Transmission Date: 20220424
  Serious: Yes (Other)
  Sender: FDA-Public Use
  Company Number: CN-Merck Healthcare KGaA-9293030

PATIENT
  Sex: Male
  Weight: 80 kg

DRUGS (4)
  1. EUTHYROX [Suspect]
     Active Substance: LEVOTHYROXINE SODIUM
     Indication: Hypothyroidism
     Dosage: FOR MORE THAN 3 YEARS
     Route: 048
     Dates: start: 2019, end: 2019
  2. EUTHYROX [Suspect]
     Active Substance: LEVOTHYROXINE SODIUM
     Route: 048
     Dates: start: 2020
  3. EUTHYROX [Suspect]
     Active Substance: LEVOTHYROXINE SODIUM
     Dosage: 2 TABLETS PER DAY FROM MONDAY TO FRIDAY, AND 1.5 TABLETS PER DAY ON SATURDAY AND SUNDAY
     Route: 048
  4. METHIMAZOLE [Suspect]
     Active Substance: METHIMAZOLE
     Indication: Hyperthyroidism
     Route: 048

REACTIONS (3)
  - Liver injury [Unknown]
  - Tension [Unknown]
  - Euphoric mood [Unknown]

NARRATIVE: CASE EVENT DATE: 20211201
